FAERS Safety Report 8475506-9 (Version None)
Quarter: 2012Q2

REPORT INFORMATION
  Report Type: 
  Country: None (occurrence: None)
  Receive Date: 20120628
  Receipt Date: 20120622
  Transmission Date: 20120825
  Serious: Yes (Hospitalization, Other)
  Sender: FDA-Public Use
  Company Number: US-ROCHE-784528

PATIENT
  Sex: Male
  Weight: 69.916 kg

DRUGS (2)
  1. ACCUTANE [Suspect]
     Indication: ACNE
     Route: 048
     Dates: start: 20011001, end: 20031001
  2. MOTRIN [Concomitant]
     Indication: PAIN

REACTIONS (5)
  - COLITIS ULCERATIVE [None]
  - OSTEOPOROSIS [None]
  - INFLAMMATORY BOWEL DISEASE [None]
  - ANAEMIA [None]
  - EMOTIONAL DISTRESS [None]
